FAERS Safety Report 15109652 (Version 1)
Quarter: 2018Q3

REPORT INFORMATION
  Report Type: Spontaneous
  Country: IT (occurrence: IT)
  Receive Date: 20180705
  Receipt Date: 20180705
  Transmission Date: 20181010
  Serious: Yes (Other)
  Sender: FDA-Public Use
  Company Number: IT-TEVA-2018-IT-919925

PATIENT
  Sex: Male

DRUGS (15)
  1. PANTOPRAZOLO SANDOZ 40 MG COMPRESSE GASTRORESISTENTI [Concomitant]
  2. SIMVASTATIN. [Concomitant]
     Active Substance: SIMVASTATIN
  3. EUTIROX 25 MICROGRAMMI COMPRESSE [Concomitant]
     Active Substance: LEVOTHYROXINE SODIUM
  4. AVODART 0,5 MG CAPSULE MOLLI [Concomitant]
  5. XARELTO 15 MG FILM?COATED TABLETS [Concomitant]
  6. QUETIAPINE FUMARATE. [Suspect]
     Active Substance: QUETIAPINE FUMARATE
     Route: 065
  7. LORAZEPAM. [Suspect]
     Active Substance: LORAZEPAM
     Route: 065
  8. LASITONE 25 MG + 37 MG CAPSULE RIGIDE [Concomitant]
  9. QUETIAPINE FUMARATE. [Suspect]
     Active Substance: QUETIAPINE FUMARATE
     Indication: AGITATION
     Route: 065
  10. LANOXIN [Concomitant]
     Active Substance: DIGOXIN
  11. BISOPROLOLO SANDOZ 1,25 MG COMPRESSE RIVESTITE CON FILM [Concomitant]
  12. XATRAL 10 MG COMPRESSE A RILASCIO PROLUNGATO [Concomitant]
  13. INTRAFER? 50 MG/ML GOCCE ORALI, SOLUZIONE [Concomitant]
  14. EBIXA 20 MG FILM?COATED TABLETS [Concomitant]
  15. BISOPROLOLO SANDOZ 2,5 MG COMPRESSE RIVESTITE CON FILM [Concomitant]

REACTIONS (1)
  - Sopor [Recovered/Resolved]
